FAERS Safety Report 9661149 (Version 1)
Quarter: 2013Q4

REPORT INFORMATION
  Report Type: Spontaneous
  Country: US (occurrence: US)
  Receive Date: 20131031
  Receipt Date: 20131031
  Transmission Date: 20140711
  Serious: Yes (Other)
  Sender: FDA-Public Use
  Company Number: US-JNJFOC-20131018483

PATIENT
  Sex: 0

DRUGS (6)
  1. USTEKINUMAB [Suspect]
     Indication: PSORIASIS
     Dosage: WEEK 0, 4 AND THEN EVERY 12 WEEKS
     Route: 058
  2. METHOTREXATE [Suspect]
     Indication: PSORIASIS
     Dosage: 7.5 MG TO 15 MG EVERY WEEK
     Route: 065
  3. METHOTREXATE [Suspect]
     Indication: PSORIASIS
     Dosage: 7.5 MG TO 15 MG EVERY WEEK
     Route: 065
  4. METHOTREXATE [Suspect]
     Indication: PSORIATIC ARTHROPATHY
     Dosage: 7.5 MG TO 15 MG EVERY WEEK
     Route: 065
  5. METHOTREXATE [Suspect]
     Indication: PSORIATIC ARTHROPATHY
     Dosage: 7.5 MG TO 15 MG EVERY WEEK
     Route: 065
  6. CYCLOSPORINE [Suspect]
     Indication: PSORIASIS
     Dosage: 2 TO 5MG/KG
     Route: 065

REACTIONS (1)
  - Nephropathy toxic [Recovered/Resolved]
